FAERS Safety Report 5574315-8 (Version None)
Quarter: 2007Q4

REPORT INFORMATION
  Report Type: 
  Country: None (occurrence: None)
  Receive Date: 20071221
  Receipt Date: 20071206
  Transmission Date: 20080405
  Serious: Yes (Hospitalization)
  Sender: FDA-Public Use
  Company Number: US021965

PATIENT
  Age: 44 Year
  Sex: Male

DRUGS (6)
  1. ACTIQ [Suspect]
     Indication: MIGRAINE
     Dosage: DOSE TITRATED UP OVER TIME BUCCAL
     Route: 002
     Dates: start: 19990101
  2. ACTIQ [Suspect]
     Indication: MIGRAINE
     Dosage: 800 UG TID BUCCAL
     Route: 002
  3. DURAGESIC-100 [Suspect]
     Indication: MIGRAINE
     Dosage: DOSE TITRATED UP OVER TIME Q1HR TRANSDERMAL
     Route: 062
     Dates: start: 19990101
  4. DURAGESIC-100 [Suspect]
     Indication: MIGRAINE
     Dosage: 50 UG Q1HR TRANSDERMAL
     Route: 062
  5. PERCOCET [Concomitant]
     Indication: MIGRAINE
     Dosage: DOSE TITRATED UP OVER TIME QD ORAL
     Route: 048
     Dates: start: 19990101
  6. PERCOCET [Suspect]
     Indication: MIGRAINE
     Dosage: 1200 MG TAKES SIXTEEN 7.5 MG TABLETS DAILY DAILY ORAL
     Route: 048

REACTIONS (9)
  - ANXIETY [None]
  - ATAXIA [None]
  - BLOOD PRESSURE ABNORMAL [None]
  - DYSARTHRIA [None]
  - FATIGUE [None]
  - HEADACHE [None]
  - NYSTAGMUS [None]
  - THINKING ABNORMAL [None]
  - TREATMENT NONCOMPLIANCE [None]
